FAERS Safety Report 9225816 (Version 1)
Quarter: 2013Q1

REPORT INFORMATION
  Report Type: Spontaneous
  Country: US (occurrence: None)
  Receive Date: 20120924
  Receipt Date: 20120924
  Transmission Date: 20140127
  Serious: Yes (Hospitalization)
  Sender: FDA-Public Use
  Company Number: 2012ST000464

PATIENT
  Age: 51 Year
  Sex: Female

DRUGS (1)
  1. MATULANE CAPSULES [Suspect]
     Indication: BRAIN NEOPLASM MALIGNANT
     Route: 048
     Dates: start: 20120103

REACTIONS (4)
  - Staphylococcal infection [None]
  - Neutropenia [None]
  - Pyrexia [None]
  - Migraine [None]
